FAERS Safety Report 4544153-3 (Version None)
Quarter: 2005Q1

REPORT INFORMATION
  Report Type: 
  Country: None (occurrence: None)
  Receive Date: 20050104
  Receipt Date: 20041102
  Transmission Date: 20050727
  Serious: Yes (Death)
  Sender: FDA-Public Use
  Company Number: JP-GLAXOSMITHKLINE-B0350834A

PATIENT
  Age: 60 Year
  Sex: Male
  Weight: 51 kg

DRUGS (12)
  1. ZOVIRAX [Suspect]
     Indication: HERPES ZOSTER
     Dosage: 800MG TWICE PER DAY
     Route: 048
     Dates: start: 20041027, end: 20041030
  2. ASPENON [Concomitant]
     Indication: TACHYCARDIA
     Dosage: 40MG PER DAY
     Route: 048
  3. VASOLAN [Concomitant]
     Indication: TACHYCARDIA
     Dosage: 80MG PER DAY
     Route: 048
  4. NU-LOTAN [Concomitant]
     Indication: HYPERTENSION
     Dosage: 25MG PER DAY
     Route: 048
  5. BUFFERIN [Concomitant]
     Indication: MYOCARDIAL INFARCTION
     Dosage: 81MG PER DAY
     Route: 048
  6. ARTIST [Concomitant]
     Indication: HYPERTENSION
     Dosage: 10MG PER DAY
     Route: 048
  7. SIGMART [Concomitant]
     Indication: HYPERTENSION
     Dosage: 15MG PER DAY
     Route: 048
  8. JUSO-JO [Concomitant]
     Indication: ACIDOSIS
     Dosage: 2G PER DAY
     Route: 048
  9. GEFANIL [Concomitant]
     Indication: GASTRIC ULCER
     Dosage: 150MG PER DAY
     Route: 048
  10. GASTER [Concomitant]
     Indication: GASTRIC ULCER
     Dosage: 10MG PER DAY
     Route: 048
  11. PHOSBLOCK [Concomitant]
     Dosage: 4500MG PER DAY
     Route: 048
  12. ARASENA-A [Concomitant]
     Indication: HERPES ZOSTER
     Route: 061
     Dates: start: 20041027, end: 20041031

REACTIONS (10)
  - ARRHYTHMIA [None]
  - ASTERIXIS [None]
  - DEPRESSED LEVEL OF CONSCIOUSNESS [None]
  - DISORIENTATION [None]
  - FEELING ABNORMAL [None]
  - MYOCLONUS [None]
  - NERVOUS SYSTEM DISORDER [None]
  - RESPIRATORY ARREST [None]
  - SPEECH DISORDER [None]
  - VENTRICULAR TACHYCARDIA [None]
